FAERS Safety Report 4899084-6 (Version None)
Quarter: 2006Q1

REPORT INFORMATION
  Report Type: 
  Country: None (occurrence: None)
  Receive Date: 20060202
  Receipt Date: 20060124
  Transmission Date: 20060701
  Serious: Yes (Other)
  Sender: FDA-Public Use
  Company Number: US-AVENTIS-200610971US

PATIENT
  Sex: Female
  Weight: 34 kg

DRUGS (2)
  1. LANTUS [Suspect]
     Indication: DIABETES MELLITUS INSULIN-DEPENDENT
     Dosage: DOSE UNIT: UNITS
     Route: 058
     Dates: start: 20050901, end: 20050926
  2. NOVOLOG [Concomitant]
     Dosage: DOSE: SLIDING SCALE
     Route: 058

REACTIONS (1)
  - GRAND MAL CONVULSION [None]
